FAERS Safety Report 4603661-7 (Version None)
Quarter: 2005Q1

REPORT INFORMATION
  Report Type: 
  Country: None (occurrence: None)
  Receive Date: 20050308
  Receipt Date: 20050223
  Transmission Date: 20050727
  Serious: Yes (Other)
  Sender: FDA-Public Use
  Company Number: 2005021125

PATIENT
  Age: 77 Year
  Sex: Female
  Weight: 92 kg

DRUGS (18)
  1. LYRICA [Suspect]
     Indication: PHANTOM PAIN
     Dosage: 600 MG (300 MG, 2 IN 1 D), ORAL
     Route: 048
  2. AMITRIPTYLINE HCL [Concomitant]
  3. FUROSEMIDE [Concomitant]
  4. ATORVASTATIN CALCIUM [Concomitant]
  5. QUININE SULFATE (QUININE SULFATE) [Concomitant]
  6. TEMAZWPAM (TEMAZEPAM) [Concomitant]
  7. RIFAMPICIN [Concomitant]
  8. CLOPIDOGREL BISULFATE [Concomitant]
  9. RISEDRONATE (RISEDRONIC ACID) [Concomitant]
  10. ACETAMINOPHEN [Concomitant]
  11. DIHYDROCODONE (DIHYDROCODONE) [Concomitant]
  12. ENALAPRIL MALEATE [Concomitant]
  13. PREDNISONE [Concomitant]
  14. CALCIUM (CALCIUM) [Concomitant]
  15. LANSOPRAZOLE [Concomitant]
  16. BECLOMETHASONE DIPROPIONATE [Concomitant]
  17. IPRATROPIUM BROMIDE [Concomitant]
  18. COLECALCIFEROL (COLECALCIFEROL) [Concomitant]

REACTIONS (2)
  - CREATININE RENAL CLEARANCE INCREASED [None]
  - DIPLOPIA [None]
